FAERS Safety Report 6251231-X (Version None)
Quarter: 2009Q2

REPORT INFORMATION
  Report Type: 
  Country: None (occurrence: None)
  Receive Date: 20090630
  Receipt Date: 20090624
  Transmission Date: 20091009
  Serious: No
  Sender: FDA-Public Use
  Company Number: US-B.I. PHARMACEUTICALS,INC./RIDGEFIELD-2009-BP-07707BP

PATIENT
  Sex: Female

DRUGS (8)
  1. SPIRIVA [Suspect]
     Indication: EMPHYSEMA
     Dosage: 18 MCG
     Route: 055
     Dates: start: 20070101
  2. ATENOLOL [Concomitant]
     Indication: HYPERTENSION
  3. LIPITOR [Concomitant]
     Indication: BLOOD CHOLESTEROL INCREASED
  4. HYDROCHLOROTHIAZIDE [Concomitant]
  5. CALTRATE [Concomitant]
     Indication: OSTEOPOROSIS
  6. FOSAMAX [Concomitant]
     Indication: OSTEOPOROSIS
  7. ASPIRIN [Concomitant]
     Indication: PROPHYLAXIS
  8. MULTIVITAMIN [Concomitant]
     Indication: MACULAR DEGENERATION

REACTIONS (4)
  - DYSPHONIA [None]
  - EYE HAEMORRHAGE [None]
  - LOCALISED INFECTION [None]
  - MACULAR DEGENERATION [None]
